FAERS Safety Report 7078616-6 (Version None)
Quarter: 2010Q4

REPORT INFORMATION
  Report Type: 
  Country: None (occurrence: None)
  Receive Date: 20101102
  Receipt Date: 20101021
  Transmission Date: 20110411
  Serious: Yes (Hospitalization, Other)
  Sender: FDA-Public Use
  Company Number: US-ELI_LILLY_AND_COMPANY-US201008000755

PATIENT
  Sex: Male
  Weight: 96.599 kg

DRUGS (14)
  1. BYETTA [Suspect]
     Indication: TYPE 2 DIABETES MELLITUS
     Dosage: 5 UG, 2/D
     Route: 058
  2. BYETTA [Suspect]
     Dosage: 10 UG, 2/D
     Route: 058
     Dates: end: 20100317
  3. PRINIVIL [Concomitant]
     Indication: HYPERTENSION
     Dosage: UNK, UNK
  4. HYDROCHLOROTHIAZIDE [Concomitant]
     Indication: CORONARY ARTERY DISEASE
  5. ZOCOR [Concomitant]
     Indication: DYSLIPIDAEMIA
     Dosage: UNK, UNK
  6. IMDUR [Concomitant]
     Indication: HYPERTENSION
     Dosage: UNK, UNK
  7. ZYRTEC [Concomitant]
     Indication: MULTIPLE ALLERGIES
     Dosage: UNK, UNK
  8. MULTI-VITAMIN [Concomitant]
     Indication: PROPHYLAXIS
     Dosage: UNK, UNK
  9. GLYBURIDE [Concomitant]
     Dosage: UNK, UNK
  10. METFORMIN [Concomitant]
     Dosage: UNK, UNK
  11. NITROSTAT [Concomitant]
     Dosage: UNK, UNK
  12. ALBUTEROL [Concomitant]
     Dosage: UNK, UNK
  13. ASPIRIN [Concomitant]
     Dosage: UNK, UNK
  14. SOTALOL [Concomitant]
     Dosage: UNK, UNK

REACTIONS (1)
  - PANCREATITIS ACUTE [None]
